FAERS Safety Report 16214741 (Version 1)
Quarter: 2019Q2

REPORT INFORMATION
  Report Type: Spontaneous
  Country: CA (occurrence: CA)
  Receive Date: 20190418
  Receipt Date: 20190418
  Transmission Date: 20190711
  Serious: Yes (Hospitalization, Other)
  Sender: FDA-Public Use
  Company Number: CA-PFIZER INC-2019160050

PATIENT
  Age: 27 Year
  Sex: Female

DRUGS (7)
  1. COSENTYX [Suspect]
     Active Substance: SECUKINUMAB
     Indication: PSORIASIS
     Dosage: 300 MG, UNK
     Route: 058
  2. HYDROCORTISONE. [Suspect]
     Active Substance: HYDROCORTISONE
     Dosage: UNK
     Route: 065
  3. CICLOSPORIN [Suspect]
     Active Substance: CYCLOSPORINE
     Dosage: 150 MG, 2X/DAY
     Route: 065
  4. COAL TAR. [Concomitant]
     Active Substance: COAL TAR
     Dosage: UNK
  5. BETAMETHASONE VALERATE. [Concomitant]
     Active Substance: BETAMETHASONE VALERATE
     Dosage: UNK
  6. METHOTREXATE SODIUM. [Suspect]
     Active Substance: METHOTREXATE SODIUM
     Dosage: UNK
     Route: 065
  7. BETAMETHASONE DIPROPIONATE/CALCIPOTRIOL [Concomitant]
     Dosage: UNK UNK, 2X/DAY
     Route: 065

REACTIONS (9)
  - Anaemia macrocytic [Recovering/Resolving]
  - Abdominal discomfort [Recovering/Resolving]
  - Movement disorder [Recovering/Resolving]
  - Dizziness [Recovering/Resolving]
  - Hepatic failure [Recovering/Resolving]
  - Inappropriate schedule of product administration [Recovering/Resolving]
  - Pneumonia aspiration [Recovering/Resolving]
  - Pruritus [Recovering/Resolving]
  - Gallbladder disorder [Recovering/Resolving]
